FAERS Safety Report 4541213-8 (Version None)
Quarter: 2004Q4

REPORT INFORMATION
  Report Type: 
  Country: None (occurrence: None)
  Receive Date: 20041227
  Receipt Date: 20041220
  Transmission Date: 20050328
  Serious: Yes (Hospitalization)
  Sender: FDA-Public Use
  Company Number: ITWYE292120DEC04

PATIENT
  Age: 68 Year
  Sex: Female

DRUGS (6)
  1. TAZOCIN (PIPERACILLIN/TAZOBACTAM, INJECTION) [Suspect]
     Indication: PNEUMONIA
     Dosage: SEE IMAGE
     Route: 042
     Dates: start: 20041020, end: 20041102
  2. TAZOCIN (PIPERACILLIN/TAZOBACTAM, INJECTION) [Suspect]
     Indication: PNEUMONIA
     Dosage: SEE IMAGE
     Route: 042
     Dates: start: 20041103, end: 20041110
  3. FLAGYL [Suspect]
     Indication: PNEUMONIA BACTERIAL
     Dosage: 500 MG 3X PER 1 DAY
     Route: 048
     Dates: start: 20041030, end: 20041110
  4. METIMAZOLE (THIAMAZOLE) [Concomitant]
  5. COUMADIN [Concomitant]
  6. DILZENE (DILTIAZEM HYDROCHLORIDE) [Concomitant]

REACTIONS (1)
  - DERMATITIS EXFOLIATIVE [None]
